FAERS Safety Report 6394681-3 (Version None)
Quarter: 2009Q4

REPORT INFORMATION
  Report Type: 
  Country: None (occurrence: None)
  Receive Date: 20091009
  Receipt Date: 20091006
  Transmission Date: 20100525
  Serious: Yes (Other)
  Sender: FDA-Public Use
  Company Number: US-ALLERGAN-0913904US

PATIENT
  Age: 68 Year
  Sex: Male

DRUGS (3)
  1. PRED FORTE [Suspect]
     Indication: UVEITIS
     Dosage: 1 GTT, QID
     Route: 047
  2. PRED FORTE [Suspect]
     Dosage: 1 GTT, BID (AM AND PM)
     Route: 047
  3. REFRESH PLUS [Concomitant]

REACTIONS (2)
  - BUTTERFLY RASH [None]
  - CONJUNCTIVAL DISORDER [None]
